FAERS Safety Report 23574551 (Version 1)
Quarter: 2024Q1

REPORT INFORMATION
  Report Type: Spontaneous
  Country: GB (occurrence: GB)
  Receive Date: 20240228
  Receipt Date: 20240228
  Transmission Date: 20240410
  Serious: Yes (Other)
  Sender: FDA-Public Use
  Company Number: None

PATIENT
  Age: 28 Year
  Sex: Female
  Weight: 85 kg

DRUGS (6)
  1. MONTELUKAST [Suspect]
     Active Substance: MONTELUKAST SODIUM
     Indication: Product used for unknown indication
     Dates: start: 20240208
  2. DOXYCYCLINE [Concomitant]
     Active Substance: DOXYCYCLINE
     Dosage: TWO NOW THEN ONE DAILY
     Dates: start: 20231223, end: 20231230
  3. BUDESONIDE\FORMOTEROL FUMARATE [Concomitant]
     Active Substance: BUDESONIDE\FORMOTEROL FUMARATE
     Dosage: ONE PUFF TWICE A DAY. PLEASE RETURN YOUR EMPTY ...
     Dates: start: 20231117
  4. MONTELUKAST [Concomitant]
     Active Substance: MONTELUKAST SODIUM
     Dosage: TAKE ONE AT NIGHT
     Dates: start: 20240104, end: 20240208
  5. PREDNISOLONE [Concomitant]
     Active Substance: PREDNISOLONE
     Dosage: EIGHT TO BE TAKEN ONCE DAILY FOR FIVE DAYS
     Dates: start: 20231223, end: 20231228
  6. ALBUTEROL [Concomitant]
     Active Substance: ALBUTEROL
     Dosage: TAKE ONE OR TWO PUFFS WHEN REQUIRED FOR BREATHL...
     Dates: start: 20231117

REACTIONS (2)
  - Dyspnoea [Recovered/Resolved]
  - Cough [Unknown]

NARRATIVE: CASE EVENT DATE: 20240208
